FAERS Safety Report 8399091-5 (Version None)
Quarter: 2012Q2

REPORT INFORMATION
  Report Type: 
  Country: None (occurrence: None)
  Receive Date: 20120525
  Receipt Date: 20120517
  Transmission Date: 20120825
  Serious: Yes (Other)
  Sender: FDA-Public Use
  Company Number: ADR-2012-00656

PATIENT
  Sex: Female

DRUGS (5)
  1. BACLOFEN [Suspect]
     Indication: SURGICAL FAILURE
  2. BACLOFEN [Suspect]
     Indication: PAIN
  3. MORPHINE [Concomitant]
  4. FENTANYL [Concomitant]
  5. BUPIVACINE [Concomitant]

REACTIONS (9)
  - FALL [None]
  - WITHDRAWAL SYNDROME [None]
  - EUPHORIC MOOD [None]
  - SKIN DISCOLOURATION [None]
  - NAUSEA [None]
  - HEADACHE [None]
  - MEDICAL DEVICE COMPLICATION [None]
  - PAIN IN EXTREMITY [None]
  - HYPOAESTHESIA [None]
